FAERS Safety Report 8547705-9 (Version None)
Quarter: 2012Q3

REPORT INFORMATION
  Report Type: 
  Country: None (occurrence: None)
  Receive Date: 20120727
  Receipt Date: 20120428
  Transmission Date: 20120928
  Serious: No
  Sender: FDA-Public Use
  Company Number: US-ASTRAZENECA-2012SE27861

PATIENT
  Age: 58 Year
  Sex: Female
  Weight: 99.8 kg

DRUGS (9)
  1. SEROQUEL XR [Suspect]
     Indication: SCHIZOPHRENIA
     Route: 048
     Dates: start: 20090101, end: 20120409
  2. SEROQUEL XR [Suspect]
     Route: 048
  3. SEROQUEL XR [Suspect]
     Route: 048
  4. BP MEDICATION [Concomitant]
  5. SEROQUEL XR [Suspect]
     Indication: BIPOLAR DISORDER
     Route: 048
     Dates: start: 20090101, end: 20120409
  6. SEROQUEL XR [Suspect]
     Route: 048
  7. EFFEXOR [Concomitant]
     Indication: DEPRESSION
     Route: 048
  8. HEART MEDICATION [Concomitant]
  9. SEROQUEL XR [Suspect]
     Route: 048

REACTIONS (6)
  - SLEEP DISORDER [None]
  - MANIA [None]
  - INTENTIONAL DRUG MISUSE [None]
  - JUDGEMENT IMPAIRED [None]
  - PSYCHOMOTOR HYPERACTIVITY [None]
  - ENERGY INCREASED [None]
